FAERS Safety Report 8599137 (Version 4)
Quarter: 2012Q4

REPORT INFORMATION
  Report Type: Report from Study
  Country: MX (occurrence: MX)
  Receive Date: 20120605
  Receipt Date: 20121101
  Transmission Date: 20130627
  Serious: Yes (Death)
  Sender: FDA-Public Use
  Company Number: MX-SANOFI-AVENTIS-2012SA039370

PATIENT
  Age: 56 Year
  Sex: Female
  Weight: 68 kg

DRUGS (16)
  1. DOCETAXEL [Suspect]
     Indication: MALIGNANT BREAST NEOPLASM
     Route: 042
     Dates: start: 20120504
  2. DOCETAXEL [Suspect]
     Indication: MALIGNANT BREAST NEOPLASM
     Dosage: last dose taken: 120 mg, last dose prior to event: 8 may 2012
     Route: 042
     Dates: start: 20120508
  3. TRASTUZUMAB [Suspect]
     Indication: MALIGNANT BREAST NEOPLASM
     Route: 042
     Dates: start: 20111021
  4. TRASTUZUMAB [Suspect]
     Indication: MALIGNANT BREAST NEOPLASM
     Dosage: last dose taken: 408 mg, last dose prior to event: 8 may 2012
     Route: 042
     Dates: start: 20120504
  5. METFORMIN [Concomitant]
     Indication: TYPE 2 DIABETES MELLITUS
  6. GLIBENCLAMIDE [Concomitant]
     Indication: TYPE 2 DIABETES MELLITUS
  7. PREGABALIN [Concomitant]
     Indication: NEUROPATHY
     Dates: start: 20111209, end: 20120518
  8. RANITIDINE [Concomitant]
     Dates: start: 20120413, end: 20120427
  9. RANITIDINE [Concomitant]
     Dates: start: 20120504
  10. LOPERAMIDE [Concomitant]
     Indication: DIARRHEA
     Dates: start: 20120504, end: 20120510
  11. GRANISETRON [Concomitant]
     Indication: NAUSEA
     Dates: start: 20120504, end: 20120510
  12. GRANISETRON [Concomitant]
     Indication: NAUSEA
     Dates: start: 20111021, end: 20120504
  13. DEXAMETHASONE [Concomitant]
     Indication: ASTHENIA
     Dates: start: 20120504, end: 20120510
  14. LORATADINE [Concomitant]
     Dates: start: 20120504, end: 20120510
  15. SCOPOLAMINE [Concomitant]
     Indication: DIARRHEA
     Dates: start: 20120508, end: 20120510
  16. CHLOROPYRAMINE HYDROCHLORIDE [Concomitant]
     Dates: start: 20111021, end: 20120504

REACTIONS (1)
  - Myocardial infarction [Fatal]
